FAERS Safety Report 16483717 (Version 1)
Quarter: 2019Q2

REPORT INFORMATION
  Report Type: Spontaneous
  Country: CN (occurrence: CN)
  Receive Date: 20190627
  Receipt Date: 20190627
  Transmission Date: 20190711
  Serious: Yes (Death, Other)
  Sender: FDA-Public Use
  Company Number: CN-ROCHE-2341175

PATIENT
  Age: 52 Year
  Sex: Male

DRUGS (7)
  1. CALCIUM FOLINATE [Concomitant]
     Active Substance: LEUCOVORIN CALCIUM
     Indication: ADENOCARCINOMA OF COLON
  2. GIMERACIL;OTERACIL POTASSIUM;TEGAFUR [Concomitant]
     Active Substance: GIMERACIL\OTERACIL\TEGAFUR
     Indication: ADENOCARCINOMA OF COLON
  3. FLUOROURACIL. [Concomitant]
     Active Substance: FLUOROURACIL
     Indication: ADENOCARCINOMA OF COLON
  4. BEVACIZUMAB. [Suspect]
     Active Substance: BEVACIZUMAB
     Indication: ADENOCARCINOMA OF COLON
     Route: 065
  5. OXALIPLATIN. [Concomitant]
     Active Substance: OXALIPLATIN
     Indication: ADENOCARCINOMA OF COLON
  6. CAPECITABINE. [Suspect]
     Active Substance: CAPECITABINE
     Indication: ADENOCARCINOMA OF COLON
     Route: 048
  7. IRINOTECAN [Concomitant]
     Active Substance: IRINOTECAN
     Indication: ADENOCARCINOMA OF COLON

REACTIONS (23)
  - Abdominal infection [Unknown]
  - Peritoneal fluid analysis abnormal [Unknown]
  - Scan abdomen abnormal [Unknown]
  - Fistula of small intestine [Unknown]
  - Anastomotic leak [Unknown]
  - Septic shock [Unknown]
  - Hepatic failure [Unknown]
  - Hyperpyrexia [Unknown]
  - Large intestinal obstruction [Unknown]
  - Shock [Unknown]
  - Lymphadenitis [Unknown]
  - Defaecation disorder [Unknown]
  - Renal failure [Unknown]
  - Gastrointestinal wall thickening [Unknown]
  - Abdominal distension [Unknown]
  - Abdominal pain [Unknown]
  - Hepatic encephalopathy [Unknown]
  - Mesenteric neoplasm [Unknown]
  - Intra-abdominal haemorrhage [Unknown]
  - Shock haemorrhagic [Unknown]
  - Abdominal mass [Unknown]
  - Flatulence [Unknown]
  - Death [Fatal]

NARRATIVE: CASE EVENT DATE: 201707
